FAERS Safety Report 26027015 (Version 2)
Quarter: 2025Q4

REPORT INFORMATION
  Report Type: Spontaneous
  Country: CN (occurrence: CN)
  Receive Date: 20251111
  Receipt Date: 20251117
  Transmission Date: 20260118
  Serious: Yes (Other)
  Sender: PFIZER
  Company Number: CN-PFIZER INC-PV202500131542

PATIENT
  Age: 28 Year
  Sex: Female

DRUGS (1)
  1. METHOTREXATE SODIUM [Suspect]
     Active Substance: METHOTREXATE SODIUM
     Indication: Ectopic pregnancy
     Dosage: 87.7 MG (EVERY 3 DAYS)
     Route: 030
     Dates: start: 20251025, end: 20251031

REACTIONS (5)
  - Rash erythematous [Recovering/Resolving]
  - Skin swelling [Recovering/Resolving]
  - Pruritus [Recovering/Resolving]
  - Stomatitis [Recovering/Resolving]
  - Off label use [Unknown]

NARRATIVE: CASE EVENT DATE: 20251025
